FAERS Safety Report 10155252 (Version 1)
Quarter: 2014Q2

REPORT INFORMATION
  Report Type: Spontaneous
  Country: US (occurrence: None)
  Receive Date: 20140505
  Receipt Date: 20140505
  Transmission Date: 20141212
  Serious: Yes (Disabling)
  Sender: FDA-Public Use
  Company Number: None

PATIENT
  Age: 48 Year
  Sex: Female
  Weight: 106.6 kg

DRUGS (1)
  1. CIPROFLOXACIN 250 MG BAYER [Suspect]
     Indication: URINARY TRACT INFECTION
     Dosage: 2?TWICE DAILY?TAKEN BY MOUTH
     Route: 048
     Dates: start: 20140417, end: 20140418

REACTIONS (6)
  - Nausea [None]
  - Influenza like illness [None]
  - Photosensitivity reaction [None]
  - Tinnitus [None]
  - Arthralgia [None]
  - Photophobia [None]
